FAERS Safety Report 8425064 (Version 11)
Quarter: 2015Q1

REPORT INFORMATION
  Report Type: Spontaneous
  Country: US (occurrence: US)
  Receive Date: 20120224
  Receipt Date: 20150317
  Transmission Date: 20150721
  Serious: Yes (Hospitalization, Other)
  Sender: FDA-Public Use
  Company Number: US-GLAXOSMITHKLINE-A0966792A

PATIENT
  Age: 39 Year
  Sex: Female
  Weight: 55 kg

DRUGS (10)
  1. ZOFRAN [Concomitant]
     Active Substance: ONDANSETRON HYDROCHLORIDE
  2. FLOLAN [Suspect]
     Active Substance: EPOPROSTENOL SODIUM
     Indication: PULMONARY HYPERTENSION
     Dosage: UNK
     Dates: start: 20100827
  3. FLOLAN [Suspect]
     Active Substance: EPOPROSTENOL SODIUM
     Dosage: 35 NG/KG/MIN CONTINUOUS; CONCENTRATION: 30,000 NG/ML; PUMP RATE: 67 ML/DAY; VIAL STRENGTH1.5 MG, CO
     Dates: start: 20100812
  4. REMERON [Concomitant]
     Active Substance: MIRTAZAPINE
  5. FLOLAN [Suspect]
     Active Substance: EPOPROSTENOL SODIUM
     Dosage: UNK
     Dates: start: 20100827
  6. FLOLAN [Suspect]
     Active Substance: EPOPROSTENOL SODIUM
     Dosage: 35NG/KG/MIN (CONCENTRATION 30,000 NG/ML, PUMP RATE 67 ML/DAY, VIAL STRENGTH 1.5 MG), CO
     Route: 042
     Dates: start: 20100812
  7. REVATIO [Concomitant]
     Active Substance: SILDENAFIL CITRATE
  8. FLOLAN [Suspect]
     Active Substance: EPOPROSTENOL SODIUM
     Indication: CONNECTIVE TISSUE DISORDER
     Dosage: 29 NG/KG/MIN CONTINUOUSLY
     Route: 042
     Dates: start: 20100812
  9. COMPAZINE [Concomitant]
     Active Substance: PROCHLORPERAZINE MALEATE
  10. BACTRIM [Concomitant]
     Active Substance: SULFAMETHOXAZOLE\TRIMETHOPRIM

REACTIONS (12)
  - Shoulder operation [Unknown]
  - Basedow^s disease [Recovered/Resolved]
  - Diarrhoea [Unknown]
  - Syncope [Recovered/Resolved]
  - Vomiting [Unknown]
  - Asthenia [Unknown]
  - Nuclear magnetic resonance imaging [Recovered/Resolved]
  - Adverse event [Unknown]
  - Hospitalisation [Recovered/Resolved]
  - Dehydration [Unknown]
  - Weight decreased [Recovered/Resolved]
  - Blood pressure decreased [Recovered/Resolved]

NARRATIVE: CASE EVENT DATE: 20120220
